FAERS Safety Report 21100095 (Version 2)
Quarter: 2022Q3

REPORT INFORMATION
  Report Type: Report from Study
  Country: CH (occurrence: CH)
  Receive Date: 20220719
  Receipt Date: 20220824
  Transmission Date: 20221026
  Serious: Yes (Hospitalization)
  Sender: FDA-Public Use
  Company Number: CH-ABBVIE-22K-151-4472602-00

PATIENT
  Age: 59 Year
  Sex: Male

DRUGS (3)
  1. CARBIDOPA\LEVODOPA [Suspect]
     Active Substance: CARBIDOPA\LEVODOPA
     Indication: Parkinson^s disease
     Dosage: MD: 7 ML, CRD: 4 ML/H, ED: 1.0 ML?16H THERAPY
     Route: 050
     Dates: start: 20220701, end: 20220708
  2. CARBIDOPA\LEVODOPA [Suspect]
     Active Substance: CARBIDOPA\LEVODOPA
     Dosage: MD: 7 ML, CRD: 4.6 ML/H, ED: 1.0 ML?16H THERAPY
     Route: 050
     Dates: start: 20220708, end: 20220711
  3. CARBIDOPA\LEVODOPA [Suspect]
     Active Substance: CARBIDOPA\LEVODOPA
     Dosage: MD: 7 ML, CRD: 4.8 ML/H, ED: 1 ML?16H THERAPY
     Route: 050
     Dates: start: 20220711

REACTIONS (2)
  - Pyrexia [Not Recovered/Not Resolved]
  - C-reactive protein increased [Not Recovered/Not Resolved]

NARRATIVE: CASE EVENT DATE: 20220715
